FAERS Safety Report 9475893 (Version 1)
Quarter: 2013Q3

REPORT INFORMATION
  Report Type: Spontaneous
  Country: US (occurrence: US)
  Receive Date: 20130826
  Receipt Date: 20130826
  Transmission Date: 20140515
  Serious: No
  Sender: FDA-Public Use
  Company Number: US-PFIZER INC-2013245758

PATIENT
  Age: 54 Year
  Sex: Female

DRUGS (2)
  1. RELPAX [Suspect]
     Indication: MIGRAINE
     Dosage: 40 MG, AS NEEDED
     Route: 048
     Dates: start: 20130819
  2. GRALISE [Concomitant]
     Dosage: 1800 MG, 1X/DAY

REACTIONS (3)
  - Drug dispensing error [Unknown]
  - Expired drug administered [Unknown]
  - Drug ineffective [Unknown]
